FAERS Safety Report 6318486-4 (Version None)
Quarter: 2009Q3

REPORT INFORMATION
  Report Type: 
  Country: None (occurrence: None)
  Receive Date: 20090819
  Receipt Date: 20090804
  Transmission Date: 20100115
  Serious: Yes (Hospitalization)
  Sender: FDA-Public Use
  Company Number: 2009AL000591

PATIENT
  Age: 73 Year
  Sex: Male
  Weight: 73.9363 kg

DRUGS (26)
  1. DIGOXIN [Suspect]
     Dosage: 0.125MG, DAILY, PO
     Route: 048
  2. ASPIRIN [Concomitant]
  3. CLOPIDOGREL [Concomitant]
  4. CARVEDILOL [Concomitant]
  5. NITROGLYCERIN [Concomitant]
  6. LOVASTATIN [Concomitant]
  7. NIFEDIPINE [Concomitant]
  8. FUROSEMIDE [Concomitant]
  9. ISOSORBIDE [Concomitant]
  10. GLYBURIDE [Concomitant]
  11. AMITRIPTYLINE [Concomitant]
  12. RANITIDINE [Concomitant]
  13. METFORMIN HCL [Concomitant]
  14. GABAPENTIN [Concomitant]
  15. HYDROCODONE [Concomitant]
  16. METOPROLOL TARTRATE [Concomitant]
  17. LISINOPRIL [Concomitant]
  18. ACETYLCYSTEINE [Concomitant]
  19. LYRICA [Concomitant]
  20. ZYDONE [Concomitant]
  21. AMITID [Concomitant]
  22. GLIPIZIDE [Concomitant]
  23. DARVOCET-N 100 [Concomitant]
  24. CYCLOBENZAPRINE HCL [Concomitant]
  25. AMITRIPTYLINE HCL [Concomitant]
  26. KLOR-CON [Concomitant]

REACTIONS (19)
  - ACTIVITIES OF DAILY LIVING IMPAIRED [None]
  - ANXIETY [None]
  - AORTIC ANEURYSM [None]
  - BLOOD GLUCOSE INCREASED [None]
  - BRADYCARDIA [None]
  - CARDIAC FAILURE CONGESTIVE [None]
  - CARDIOMYOPATHY [None]
  - ECONOMIC PROBLEM [None]
  - EMOTIONAL DISTRESS [None]
  - FEAR [None]
  - HYPERTENSION [None]
  - INJURY [None]
  - MENTAL DISORDER [None]
  - PAIN [None]
  - PLEURAL EFFUSION [None]
  - RENAL ARTERY STENOSIS [None]
  - RENAL HYPERTENSION [None]
  - SOCIAL AVOIDANT BEHAVIOUR [None]
  - UNEVALUABLE EVENT [None]
